FAERS Safety Report 24550398 (Version 1)
Quarter: 2024Q4

REPORT INFORMATION
  Report Type: Spontaneous
  Country: US (occurrence: None)
  Receive Date: 20241025
  Receipt Date: 20241025
  Transmission Date: 20250114
  Serious: Yes (Other)
  Sender: Public
  Company Number: None

PATIENT
  Age: 80 Year
  Sex: Male
  Weight: 63.5 kg

DRUGS (1)
  1. KISUNLA [Suspect]
     Active Substance: DONANEMAB-AZBT
     Indication: Dementia Alzheimer^s type
     Dosage: OTHER QUANTITY : 2 VIALS ;?OTHER FREQUENCY : 4 WEEKS ;?
     Route: 042

REACTIONS (4)
  - Infusion related reaction [None]
  - Flushing [None]
  - Blood pressure decreased [None]
  - Incorrect dose administered [None]
